FAERS Safety Report 9346705 (Version 1)
Quarter: 2013Q2

REPORT INFORMATION
  Report Type: Spontaneous
  Country: DE (occurrence: DE)
  Receive Date: 20130613
  Receipt Date: 20130613
  Transmission Date: 20140414
  Serious: Yes (Hospitalization)
  Sender: FDA-Public Use
  Company Number: DE-JNJFOC-20130601171

PATIENT
  Age: 68 Year
  Sex: Female

DRUGS (3)
  1. CAELYX [Suspect]
     Indication: BREAST CANCER METASTATIC
     Route: 042
     Dates: start: 20130208
  2. CAELYX [Suspect]
     Indication: BREAST CANCER METASTATIC
     Route: 042
     Dates: start: 20130301
  3. CAELYX [Suspect]
     Indication: BREAST CANCER METASTATIC
     Route: 042
     Dates: start: 20130118

REACTIONS (1)
  - Epidermolysis [Not Recovered/Not Resolved]
